FAERS Safety Report 8104253-8 (Version None)
Quarter: 2012Q1

REPORT INFORMATION
  Report Type: 
  Country: None (occurrence: None)
  Receive Date: 20120130
  Receipt Date: 20120124
  Transmission Date: 20120608
  Serious: Yes (Hospitalization, Other)
  Sender: FDA-Public Use
  Company Number: US-BAYER-2011-120752

PATIENT
  Age: 31 Year
  Sex: Female
  Weight: 66.667 kg

DRUGS (3)
  1. VALTREX [Concomitant]
     Indication: ORAL HERPES
     Dosage: UNK UNK, PRN
  2. ADDERALL 5 [Concomitant]
     Indication: ATTENTION DEFICIT/HYPERACTIVITY DISORDER
     Dosage: UNK
  3. MIRENA [Suspect]
     Dosage: 20 MCG/24HR, CONT
     Route: 015
     Dates: end: 20110101

REACTIONS (2)
  - PELVIC PAIN [None]
  - ECTOPIC PREGNANCY [None]
